FAERS Safety Report 5427513-8 (Version None)
Quarter: 2007Q3

REPORT INFORMATION
  Report Type: 
  Country: None (occurrence: None)
  Receive Date: 20070828
  Receipt Date: 20070817
  Transmission Date: 20080115
  Serious: Yes (Other)
  Sender: FDA-Public Use
  Company Number: SE-JNJFOC-20070804000

PATIENT
  Age: 11 Year
  Sex: Female

DRUGS (4)
  1. CONCERTA [Suspect]
     Indication: DRUG USE FOR UNKNOWN INDICATION
  2. FENTANYL [Suspect]
     Indication: DRUG USE FOR UNKNOWN INDICATION
  3. ATRACURIUM BESYLATE [Suspect]
     Indication: DRUG USE FOR UNKNOWN INDICATION
  4. ROBINUL-N [Suspect]
     Indication: DRUG USE FOR UNKNOWN INDICATION

REACTIONS (2)
  - AGGRESSION [None]
  - SLEEP DISORDER [None]
